FAERS Safety Report 5361143-1 (Version None)
Quarter: 2007Q2

REPORT INFORMATION
  Report Type: 
  Country: None (occurrence: None)
  Receive Date: 20070614
  Receipt Date: 20070601
  Transmission Date: 20071010
  Serious: Yes (Other)
  Sender: FDA-Public Use
  Company Number: 2007323277

PATIENT
  Sex: Female
  Weight: 56 kg

DRUGS (3)
  1. NICOTINE [Suspect]
     Indication: SMOKING CESSATION THERAPY
     Dosage: TOPICAL
     Route: 061
     Dates: start: 20070602
  2. NICORETTE [Suspect]
     Indication: SMOKING CESSATION THERAPY
     Dosage: 2 MG, 16-20 GUMS PER DAY, ORAL
     Route: 048
     Dates: start: 20060101, end: 20070601
  3. NICOTINE [Suspect]
     Indication: SMOKING CESSATION THERAPY
     Dosage: 2MG, 16-20 GUMS PER DAY, ORAL
     Route: 048
     Dates: start: 20040101, end: 20060101

REACTIONS (2)
  - ANXIETY [None]
  - DRUG DEPENDENCE [None]
